FAERS Safety Report 22204743 (Version 1)
Quarter: 2023Q2

REPORT INFORMATION
  Report Type: Spontaneous
  Country: SI (occurrence: SI)
  Receive Date: 20230413
  Receipt Date: 20230413
  Transmission Date: 20230721
  Serious: Yes (Other)
  Sender: FDA-Public Use
  Company Number: SI-BAYER-2022A058152

PATIENT
  Age: 72 Year
  Sex: Male

DRUGS (6)
  1. XARELTO [Suspect]
     Active Substance: RIVAROXABAN
     Indication: Product used for unknown indication
     Dosage: 20 MG, QD
     Route: 048
  2. PERINDOPRIL/AMLODIPIN DENK [Concomitant]
     Dosage: 8/10 MG, 1X1 TABLETS IN THE MORNING (TAKING FOR 5 YEARS)
  3. BISOPROLOL [Concomitant]
     Active Substance: BISOPROLOL
     Dosage: 2.5 MG1X1 TABLET IN THE MORNING (TAKING FOR 1 YEAR)
  4. ROSUVASTATIN [Concomitant]
     Active Substance: ROSUVASTATIN
     Dosage: 40 MG 1X1 TABLET IN THE EVENING (TAKING FOR 5 YEARS)
  5. METFORMIN [Concomitant]
     Active Substance: METFORMIN HYDROCHLORIDE
     Dosage: 850 MG 2X1 TABLET PER DAY (TAKING FOR 5 YEARS)
  6. DAPAGLIFLOZIN [Concomitant]
     Active Substance: DAPAGLIFLOZIN
     Dosage: 5 MG 2X1 TABLET PER DAY (TAKING FOR 5 YEARS)

REACTIONS (1)
  - Hip arthroplasty [Unknown]

NARRATIVE: CASE EVENT DATE: 20220318
